FAERS Safety Report 16308403 (Version 1)
Quarter: 2019Q2

REPORT INFORMATION
  Report Type: Spontaneous
  Country: JP (occurrence: JP)
  Receive Date: 20190514
  Receipt Date: 20190514
  Transmission Date: 20190711
  Serious: Yes (Hospitalization)
  Sender: FDA-Public Use
  Company Number: JP-TEVA-2019-JP-1049503

PATIENT
  Age: 76 Year
  Sex: Female

DRUGS (12)
  1. CELECOXIB. [Suspect]
     Active Substance: CELECOXIB
     Indication: RHEUMATOID ARTHRITIS
     Route: 065
  2. FOSFLUCONAZOLE [Suspect]
     Active Substance: FOSFLUCONAZOLE
     Indication: CRYPTOCOCCOSIS
     Route: 065
  3. PREDNISOLONE. [Suspect]
     Active Substance: PREDNISOLONE
     Indication: INTERSTITIAL LUNG DISEASE
     Dosage: DOSE INCREASED 3 MONTHS PRIOR TO PRESENTATION
     Route: 065
  4. METHOTREXATE. [Suspect]
     Active Substance: METHOTREXATE
     Indication: RHEUMATOID ARTHRITIS
     Route: 065
  5. WARFARIN [Concomitant]
     Active Substance: WARFARIN
     Indication: OEDEMA PERIPHERAL
  6. PREDNISOLONE. [Suspect]
     Active Substance: PREDNISOLONE
     Indication: RHEUMATOID ARTHRITIS
     Route: 065
  7. LIPOSOMAL AMPHOTERICIN B [Suspect]
     Active Substance: AMPHOTERICIN B
     Indication: CRYPTOCOCCOSIS
     Route: 065
  8. LIPOSOMAL AMPHOTERICIN B [Suspect]
     Active Substance: AMPHOTERICIN B
     Indication: CELLULITIS
  9. 5-FLUOROCYTOSINE [Suspect]
     Active Substance: FLUCYTOSINE
     Indication: CRYPTOCOCCOSIS
     Route: 065
  10. FOSFLUCONAZOLE [Suspect]
     Active Substance: FOSFLUCONAZOLE
     Indication: CELLULITIS
  11. 5-FLUOROCYTOSINE [Suspect]
     Active Substance: FLUCYTOSINE
     Indication: CELLULITIS
  12. WARFARIN [Concomitant]
     Active Substance: WARFARIN
     Indication: DEEP VEIN THROMBOSIS
     Route: 065

REACTIONS (6)
  - Megacolon [Recovering/Resolving]
  - Cryptococcosis [Unknown]
  - Haemophagocytic lymphohistiocytosis [Recovering/Resolving]
  - Cellulitis [Unknown]
  - Clostridium difficile infection [Recovering/Resolving]
  - Cytomegalovirus infection [Recovering/Resolving]
